FAERS Safety Report 7801734-9 (Version None)
Quarter: 2011Q4

REPORT INFORMATION
  Report Type: 
  Country: None (occurrence: None)
  Receive Date: 20111007
  Receipt Date: 20111003
  Transmission Date: 20120403
  Serious: Yes (Hospitalization)
  Sender: FDA-Public Use
  Company Number: IT-AMGEN-ITASP2011039050

PATIENT
  Age: 29 Year
  Sex: Male

DRUGS (1)
  1. ENBREL [Suspect]
     Indication: ERYTHRODERMIC PSORIASIS
     Dosage: 100 MG, WEEKLY
     Route: 058
     Dates: start: 20110708, end: 20110718

REACTIONS (5)
  - URINARY TRACT INFECTION [None]
  - GRAVITATIONAL OEDEMA [None]
  - PYREXIA [None]
  - SYNCOPE [None]
  - ERYTHRODERMIC PSORIASIS [None]
